FAERS Safety Report 10360861 (Version 2)
Quarter: 2015Q3

REPORT INFORMATION
  Report Type: Report from Study
  Country: JP (occurrence: JP)
  Receive Date: 20140804
  Receipt Date: 20150828
  Transmission Date: 20151125
  Serious: Yes (Hospitalization)
  Sender: FDA-Public Use
  Company Number: JP-NAPPMUNDI-GBR-2014-0019848

PATIENT
  Age: 80 Year
  Sex: Male

DRUGS (12)
  1. OXYCONTIN [Suspect]
     Active Substance: OXYCODONE HYDROCHLORIDE
     Indication: PAIN
     Dosage: 5 MG, BID
     Route: 048
     Dates: start: 20130816, end: 20140723
  2. HERBESSER [Concomitant]
     Active Substance: DILTIAZEM HYDROCHLORIDE
     Indication: ANGINA PECTORIS
     Dosage: 100 MG, DAILY
     Route: 048
     Dates: start: 2008
  3. CONSTAN                            /00595201/ [Concomitant]
     Active Substance: ALPRAZOLAM
     Indication: PAIN
     Dosage: 1.2 MG, DAILY
     Route: 048
     Dates: start: 20130725
  4. FLUNASE                            /00972202/ [Concomitant]
     Indication: NASAL SEPTUM DEVIATION
     Dosage: UNK
     Dates: start: 20140318
  5. METFORMIN [Concomitant]
     Active Substance: METFORMIN HYDROCHLORIDE
     Indication: DIABETES MELLITUS
     Dosage: 500 MG, DAILY
     Route: 048
     Dates: start: 201112
  6. YOKUININ [Concomitant]
     Active Substance: HERBALS
     Indication: SEBORRHOEIC KERATOSIS
     Dosage: 9 DF, DAILY
     Route: 048
  7. HARNAL [Concomitant]
     Active Substance: TAMSULOSIN HYDROCHLORIDE
     Indication: BENIGN PROSTATIC HYPERPLASIA
     Dosage: 0.2 MG, DAILY
     Route: 048
     Dates: start: 20131115
  8. MDS [Concomitant]
     Indication: SEBORRHOEIC KERATOSIS
     Dosage: 900 MG, DAILY
     Route: 048
  9. ANPLAG [Concomitant]
     Active Substance: SARPOGRELATE
     Indication: PAIN
     Dosage: 200 MG, DAILY
     Route: 048
     Dates: start: 20130725
  10. EQUA [Concomitant]
     Active Substance: VILDAGLIPTIN
     Indication: DIABETES MELLITUS
     Dosage: 100 MG, DAILY
     Route: 048
  11. DEPAS [Concomitant]
     Active Substance: ETIZOLAM
     Indication: INSOMNIA
     Dosage: 0.5 MG, DAILY
     Route: 048
  12. BUFFERIN                           /00009201/ [Concomitant]
     Indication: ANGINA PECTORIS
     Dosage: 81 MG, DAILY
     Route: 048

REACTIONS (6)
  - Malaise [Unknown]
  - Respiratory disorder [Unknown]
  - Decreased appetite [Unknown]
  - Dysgeusia [Unknown]
  - Dizziness [Unknown]
  - Heat illness [Recovered/Resolved]

NARRATIVE: CASE EVENT DATE: 201406
